FAERS Safety Report 5253004-3 (Version None)
Quarter: 2007Q1

REPORT INFORMATION
  Report Type: 
  Country: None (occurrence: None)
  Receive Date: 20070301
  Receipt Date: 20070221
  Transmission Date: 20070707
  Serious: Yes (Hospitalization)
  Sender: FDA-Public Use
  Company Number: CA-ROCHE-483876

PATIENT
  Age: 87 Year
  Sex: Female
  Weight: 59.1 kg

DRUGS (18)
  1. TAMIFLU [Suspect]
     Dosage: DOSAGE REGIMEN REPORTED AS DIRECTED. STOP DATE: 2007.
     Route: 048
     Dates: start: 20070103
  2. TAMIFLU [Suspect]
     Route: 048
     Dates: start: 20070202, end: 20070203
  3. TAMIFLU [Suspect]
     Dosage: INDICATION REPORTED AS INFLUENZA.
     Route: 048
     Dates: start: 20070204, end: 20070207
  4. AMOXICILLIN + CLAVULANATE POTASSIUM [Concomitant]
     Dosage: DRUG REPORTED AS AMOXICILLIN 250 MG/ CLAVULANATE 125 MG.
     Route: 048
     Dates: start: 20070206, end: 20070211
  5. ATORVASTATIN [Concomitant]
     Dosage: FREQUENCY: ONCE IN THE EVENING.
     Route: 048
     Dates: start: 20070103
  6. ACETYLSALICYLIC ACID SRT [Concomitant]
     Route: 048
     Dates: start: 20070103
  7. DOCUSATE SODIUM [Concomitant]
     Dosage: DRUG REPORTED AS DUCOSATE SODIUM.
     Route: 048
     Dates: start: 20070103
  8. ENALAPRIL MALEATE [Concomitant]
     Route: 048
     Dates: start: 20070103
  9. METOPROLOL SUCCINATE [Concomitant]
     Route: 048
     Dates: start: 20070103
  10. VITALUX [Concomitant]
     Dosage: DRUG REPORTED AS MULTIVITAMIN WITHMINERALS / VITALUX-S.
     Route: 048
     Dates: start: 20070103
  11. NIFEDIPINE [Concomitant]
     Route: 048
     Dates: start: 20070103
  12. ACETAMINOPHEN [Concomitant]
     Route: 048
     Dates: start: 20070205
  13. BISACODYL SUPPOSITORY [Concomitant]
     Route: 054
     Dates: start: 20070103
  14. GLYCERINE SUPPOSITORY [Concomitant]
     Dosage: DRUG REPORTED AS GLYCERIN ADULT SUPPOSITORY. DOSAGE REGIMEN REPORTED AS EVERY 48 HOURS AS NEEDED.
     Route: 054
     Dates: start: 20070103
  15. LACTULOSE [Concomitant]
     Dosage: STRENGHT REPORTED AS 333.5 G/ 500 ML. DOSAGE REGIMEN REPORTED AS 20.1 GR / 30 ML TWICE DAILY.
     Route: 048
     Dates: start: 20070103
  16. MICROLAX [Concomitant]
     Dosage: DOSAGE REGIMEN REPORTED AS UD (AS DIRECTED) AS NEEDED.
     Route: 054
     Dates: start: 20070103
  17. SENNA GLYCOSIDES [Concomitant]
     Dosage: DRUG REPORTED AS SENNA GLUCOSIDES. AT NIGHT.
     Route: 048
     Dates: start: 20070103
  18. MACROBID [Concomitant]
     Route: 048
     Dates: start: 20070115, end: 20070122

REACTIONS (1)
  - TRANSIENT ISCHAEMIC ATTACK [None]
